FAERS Safety Report 17598041 (Version 4)
Quarter: 2021Q1

REPORT INFORMATION
  Report Type: Spontaneous
  Country: US (occurrence: US)
  Receive Date: 20200330
  Receipt Date: 20210311
  Transmission Date: 20210419
  Serious: Yes (Other)
  Sender: FDA-Public Use
  Company Number: US-PFIZER INC-2020129504

PATIENT
  Age: 62 Year
  Sex: Female

DRUGS (1)
  1. XELJANZ XR [Suspect]
     Active Substance: TOFACITINIB CITRATE
     Indication: RHEUMATOID ARTHRITIS
     Dosage: 11 MG, 1X/DAY
     Route: 048
     Dates: start: 2018

REACTIONS (17)
  - Blood pressure increased [Recovered/Resolved]
  - Osteoarthritis [Unknown]
  - Memory impairment [Unknown]
  - Illness [Recovering/Resolving]
  - Osteoporosis [Unknown]
  - Hypersomnia [Unknown]
  - Wrong schedule [Unknown]
  - Product dose omission issue [Unknown]
  - Ear infection [Unknown]
  - Thyroid function test abnormal [Unknown]
  - Dysphagia [Unknown]
  - Pharyngitis streptococcal [Unknown]
  - Condition aggravated [Unknown]
  - Blood pressure abnormal [Recovered/Resolved]
  - Choking [Recovered/Resolved]
  - Sinusitis [Unknown]
  - Gastric disorder [Unknown]

NARRATIVE: CASE EVENT DATE: 202004
